FAERS Safety Report 16933635 (Version 3)
Quarter: 2020Q3

REPORT INFORMATION
  Report Type: Report from Study
  Country: ES (occurrence: ES)
  Receive Date: 20191018
  Receipt Date: 20200618
  Transmission Date: 20201104
  Serious: Yes (Hospitalization, Other)
  Sender: FDA-Public Use
  Company Number: ES-TEVA-2019-ES-1046004

PATIENT
  Age: 68 Year
  Sex: Female
  Weight: 80 kg

DRUGS (15)
  1. POLATUZUMAB VEDOTIN. [Suspect]
     Active Substance: POLATUZUMAB VEDOTIN
     Indication: DIFFUSE LARGE B-CELL LYMPHOMA
     Dosage: 140 MG, UNKNOWN FREQ. (FIRST DOSE)
     Route: 042
     Dates: start: 20190211
  2. POLATUZUMAB VEDOTIN. [Suspect]
     Active Substance: POLATUZUMAB VEDOTIN
     Dosage: 140 MG, UNKNOWN FREQ. (2ND CYCLE)
     Route: 042
     Dates: start: 20190327
  3. POLATUZUMAB VEDOTIN. [Suspect]
     Active Substance: POLATUZUMAB VEDOTIN
     Dosage: 140 MG, UNKNOWN FREQ. (3 RD CYCLE)
     Route: 042
     Dates: start: 20190424, end: 20190725
  4. BENDAMUSTINE HYDROCHLORIDE. [Suspect]
     Active Substance: BENDAMUSTINE HYDROCHLORIDE
     Indication: DIFFUSE LARGE B-CELL LYMPHOMA
     Route: 042
     Dates: start: 20190211
  5. RITUXIMAB. [Suspect]
     Active Substance: RITUXIMAB
     Dosage: 680 MG, UNKNOWN FREQ. (2 ND CYCLE)
     Route: 042
     Dates: start: 20190327
  6. ATORVASTATIN [Concomitant]
     Active Substance: ATORVASTATIN
     Indication: PRODUCT USED FOR UNKNOWN INDICATION
     Route: 065
  7. AMLODIPINE [Concomitant]
     Active Substance: AMLODIPINE BESYLATE
     Indication: PRODUCT USED FOR UNKNOWN INDICATION
     Route: 048
  8. BENDAMUSTINE HYDROCHLORIDE. [Suspect]
     Active Substance: BENDAMUSTINE HYDROCHLORIDE
     Dosage: 70% DOSE, 3RD CYCLE
     Route: 042
     Dates: start: 20190424, end: 20190725
  9. RITUXIMAB. [Suspect]
     Active Substance: RITUXIMAB
     Dosage: 680 MG, UNKNOWN FREQ. (2 ND CYCLE)
     Route: 042
     Dates: start: 20190424, end: 20190725
  10. PARACETAMOL [Concomitant]
     Active Substance: ACETAMINOPHEN
     Indication: PREMEDICATION
     Route: 042
     Dates: start: 20190211, end: 20190211
  11. OMEPRAZOLE. [Concomitant]
     Active Substance: OMEPRAZOLE
     Indication: PRODUCT USED FOR UNKNOWN INDICATION
     Route: 048
  12. BENDAMUSTINE HYDROCHLORIDE. [Suspect]
     Active Substance: BENDAMUSTINE HYDROCHLORIDE
     Route: 042
  13. METILPREDNISOLONE [Concomitant]
     Active Substance: METHYLPREDNISOLONE
     Indication: PREMEDICATION
     Route: 042
     Dates: start: 20190211, end: 20190211
  14. RITUXIMAB. [Suspect]
     Active Substance: RITUXIMAB
     Indication: DIFFUSE LARGE B-CELL LYMPHOMA
     Dosage: 680 MG, UNKNOWN FREQ. (FIRST DOSE)
     Route: 042
     Dates: start: 20190211
  15. PENTAMIDINE [Concomitant]
     Active Substance: PENTAMIDINE
     Indication: PRODUCT USED FOR UNKNOWN INDICATION
     Dosage: (INHALATION)
     Route: 065

REACTIONS (6)
  - Infusion site extravasation [Recovered/Resolved]
  - Pancytopenia [Recovered/Resolved]
  - Pancytopenia [Not Recovered/Not Resolved]
  - Agranulocytosis [Recovered/Resolved]
  - Lung consolidation [Unknown]
  - Product use in unapproved indication [Unknown]

NARRATIVE: CASE EVENT DATE: 20190522
